FAERS Safety Report 9345441 (Version 2)
Quarter: 2013Q4

REPORT INFORMATION
  Report Type: Spontaneous
  Country: CA (occurrence: CA)
  Receive Date: 20130613
  Receipt Date: 20131031
  Transmission Date: 20140711
  Serious: Yes (Hospitalization, Other)
  Sender: FDA-Public Use
  Company Number: CA-ROCHE-1054189

PATIENT
  Age: 63 Year
  Sex: Female

DRUGS (6)
  1. XOLAIR [Suspect]
     Indication: ASTHMA
     Route: 058
     Dates: start: 20070711
  2. XOLAIR [Suspect]
     Route: 058
     Dates: start: 20090330
  3. XOLAIR [Suspect]
     Route: 058
     Dates: start: 20090530
  4. XOLAIR [Suspect]
     Route: 058
     Dates: start: 20130515
  5. XOLAIR [Suspect]
     Route: 058
     Dates: start: 20130604
  6. SYMBICORT [Concomitant]

REACTIONS (8)
  - Bronchospasm [Not Recovered/Not Resolved]
  - Productive cough [Unknown]
  - Sinusitis [Unknown]
  - Bronchitis [Recovering/Resolving]
  - Dyspnoea [Unknown]
  - Asthma [Recovering/Resolving]
  - Cough [Unknown]
  - Malaise [Unknown]
